FAERS Safety Report 5200062-8 (Version None)
Quarter: 2007Q1

REPORT INFORMATION
  Report Type: 
  Country: None (occurrence: None)
  Receive Date: 20070105
  Receipt Date: 20061228
  Transmission Date: 20070707
  Serious: Yes (Hospitalization)
  Sender: FDA-Public Use
  Company Number: DE-JNJFOC-20061206868

PATIENT
  Age: 64 Year
  Sex: Male

DRUGS (11)
  1. HALDOL [Suspect]
     Route: 048
     Dates: start: 20020821, end: 20020913
  2. HALDOL [Suspect]
     Indication: DRUG USE FOR UNKNOWN INDICATION
     Route: 048
     Dates: start: 20020821, end: 20020913
  3. STANGYL [Suspect]
     Route: 048
     Dates: start: 20020905, end: 20021007
  4. STANGYL [Suspect]
     Route: 048
     Dates: start: 20020905, end: 20021007
  5. STANGYL [Suspect]
     Indication: SLEEP DISORDER
     Route: 048
     Dates: start: 20020905, end: 20021007
  6. VENLAFAXINE HCL [Concomitant]
     Route: 048
     Dates: start: 20020814
  7. VENLAFAXINE HCL [Concomitant]
     Route: 048
     Dates: start: 20020814
  8. VENLAFAXINE HCL [Concomitant]
     Route: 048
     Dates: start: 20020814
  9. TAVOR [Concomitant]
     Route: 048
     Dates: start: 20020817, end: 20021019
  10. TAVOR [Concomitant]
     Route: 048
     Dates: start: 20020817, end: 20021019
  11. TAVOR [Concomitant]
     Route: 048
     Dates: start: 20020817, end: 20021019

REACTIONS (2)
  - CONSTIPATION [None]
  - FLATULENCE [None]
